FAERS Safety Report 14797806 (Version 1)
Quarter: 2018Q2

REPORT INFORMATION
  Report Type: Spontaneous
  Country: GB (occurrence: GB)
  Receive Date: 20180424
  Receipt Date: 20180424
  Transmission Date: 20180711
  Serious: Yes (Death, Hospitalization)
  Sender: FDA-Public Use
  Company Number: GB-CONCORDIA PHARMACEUTICALS INC.-E2B_00011287

PATIENT
  Age: 73 Year

DRUGS (11)
  1. BISOPROLOL [Suspect]
     Active Substance: BISOPROLOL
     Route: 048
  2. LANSOPRAZOLE. [Concomitant]
     Active Substance: LANSOPRAZOLE
  3. SALBUTAMOL [Concomitant]
     Active Substance: ALBUTEROL
  4. THIAMINE. [Concomitant]
     Active Substance: THIAMINE
  5. SPIRONOLACTONE. [Concomitant]
     Active Substance: SPIRONOLACTONE
     Dosage: MORNING
     Route: 048
  6. TIOTROPIUM BROMIDE [Concomitant]
     Active Substance: TIOTROPIUM BROMIDE
  7. FERROUS FUMARATE [Concomitant]
     Active Substance: FERROUS FUMARATE
  8. DIGOXIN. [Suspect]
     Active Substance: DIGOXIN
     Dosage: MORNING
     Route: 048
  9. IBUPROFEN. [Suspect]
     Active Substance: IBUPROFEN
     Dosage: UNKNOWN - NO DOSE MENTIONED IN NOTES
     Route: 048
  10. XARELTO [Suspect]
     Active Substance: RIVAROXABAN
     Route: 048
  11. BUMETANIDE. [Concomitant]
     Active Substance: BUMETANIDE
     Dosage: MORNING
     Route: 048

REACTIONS (7)
  - Toxicity to various agents [Fatal]
  - Bradycardia [Fatal]
  - Atrioventricular block [Fatal]
  - Cardiac failure [Fatal]
  - Acute kidney injury [Fatal]
  - Platelet count decreased [Fatal]
  - Atrial fibrillation [Fatal]
